FAERS Safety Report 4433701-X (Version None)
Quarter: 2004Q3

REPORT INFORMATION
  Report Type: 
  Country: None (occurrence: None)
  Receive Date: 20040825
  Receipt Date: 20040825
  Transmission Date: 20050211
  Serious: Yes (Hospitalization)
  Sender: FDA-Public Use
  Company Number: None

PATIENT
  Sex: Female
  Weight: 77 kg

DRUGS (2)
  1. ATOMOXETINE 40 MG (ELI LILLY) [Suspect]
     Indication: ATTENTION DEFICIT/HYPERACTIVITY DISORDER
     Dosage: 40 MG DAILY
     Dates: start: 20031201, end: 20040401
  2. ARIPIPRAZOLE (BRISTOL-MYERS -SQUIBB) [Suspect]
     Dosage: 7.5 MG DAILY
     Dates: start: 20030101, end: 20040401

REACTIONS (4)
  - ABNORMAL BEHAVIOUR [None]
  - AGGRESSION [None]
  - HAIR PLUCKING [None]
  - PHYSICAL ABUSE [None]
